FAERS Safety Report 14531855 (Version 1)
Quarter: 2018Q1

REPORT INFORMATION
  Report Type: Spontaneous
  Country: ES (occurrence: ES)
  Receive Date: 20180214
  Receipt Date: 20180214
  Transmission Date: 20180509
  Serious: Yes (Death)
  Sender: FDA-Public Use
  Company Number: ES-MYLANLABS-2018M1009544

PATIENT
  Age: 88 Year
  Sex: Female

DRUGS (2)
  1. TRIMETOPRIMA (SULFAMETHOXAZOLE\TRIMETHOPRIM) [Suspect]
     Active Substance: SULFAMETHOXAZOLE\TRIMETHOPRIM
     Indication: SUPERINFECTION MYCOBACTERIAL
     Dosage: TRIMETOPRIM 160 MG/SULFAMETOXAZOL 800MG 3 VECES ENSEMANA (DIASALTERNOS)
     Route: 048
  2. ACICLOVIR [Suspect]
     Active Substance: ACYCLOVIR
     Indication: HERPES ZOSTER
     Dosage: 800 MG, QD
     Route: 048
     Dates: start: 20161116, end: 20170108

REACTIONS (1)
  - Toxic epidermal necrolysis [Fatal]

NARRATIVE: CASE EVENT DATE: 20170110
